FAERS Safety Report 7931179-2 (Version None)
Quarter: 2011Q4

REPORT INFORMATION
  Report Type: 
  Country: None (occurrence: None)
  Receive Date: 20111121
  Receipt Date: 20111110
  Transmission Date: 20120403
  Serious: Yes (Hospitalization)
  Sender: FDA-Public Use
  Company Number: JP-ELI_LILLY_AND_COMPANY-JP201106005286

PATIENT
  Age: 85 Year
  Sex: Male

DRUGS (1)
  1. FORTEO [Suspect]
     Dosage: UNK
     Route: 058
     Dates: start: 20110401

REACTIONS (7)
  - PULPITIS DENTAL [None]
  - GINGIVAL INFECTION [None]
  - TOOTH EXTRACTION [None]
  - TOOTHACHE [None]
  - PNEUMONIA [None]
  - BACK PAIN [None]
  - DYSPNOEA [None]
